FAERS Safety Report 7602759-9 (Version None)
Quarter: 2011Q3

REPORT INFORMATION
  Report Type: 
  Country: None (occurrence: None)
  Receive Date: 20110712
  Receipt Date: 20110705
  Transmission Date: 20111222
  Serious: Yes (Other)
  Sender: FDA-Public Use
  Company Number: US-ASTRAZENECA-2011SE39978

PATIENT
  Age: 69 Year
  Sex: Male

DRUGS (6)
  1. AVODART [Concomitant]
  2. TOPROL-XL [Suspect]
     Indication: BLOOD PRESSURE
     Route: 048
     Dates: start: 20080101, end: 20110601
  3. DILT-CD [Concomitant]
  4. WARFARIN SODIUM [Concomitant]
  5. TOPROL-XL [Suspect]
     Route: 048
     Dates: start: 20110601
  6. COZAAR [Concomitant]

REACTIONS (2)
  - RASH [None]
  - ATRIAL FIBRILLATION [None]
